FAERS Safety Report 9211250 (Version 1)
Quarter: 2013Q2

REPORT INFORMATION
  Report Type: Spontaneous
  Country: US (occurrence: US)
  Receive Date: 20130404
  Receipt Date: 20130404
  Transmission Date: 20140414
  Serious: No
  Sender: FDA-Public Use
  Company Number: US-AMGEN-USASP2013007936

PATIENT
  Age: 66 Year
  Sex: Female

DRUGS (2)
  1. ENBREL [Suspect]
     Indication: RHEUMATOID ARTHRITIS
     Dosage: 50 MG, QWK
     Dates: start: 201107
  2. METHOTREXATE [Concomitant]
     Dosage: 25 MG, QWK
     Route: 048
     Dates: start: 2008

REACTIONS (10)
  - Pruritus [Not Recovered/Not Resolved]
  - Sinus headache [Not Recovered/Not Resolved]
  - Sinus congestion [Not Recovered/Not Resolved]
  - Lacrimation increased [Not Recovered/Not Resolved]
  - Upper respiratory tract congestion [Recovered/Resolved]
  - Paranasal sinus hypersecretion [Not Recovered/Not Resolved]
  - Cough [Recovered/Resolved]
  - Respiratory tract congestion [Recovered/Resolved]
  - Lymphadenopathy [Not Recovered/Not Resolved]
  - Gastrointestinal infection [Recovered/Resolved]
